FAERS Safety Report 7647421-1 (Version None)
Quarter: 2011Q3

REPORT INFORMATION
  Report Type: 
  Country: None (occurrence: None)
  Receive Date: 20110801
  Receipt Date: 20110720
  Transmission Date: 20111222
  Serious: Yes (Other)
  Sender: FDA-Public Use
  Company Number: ES-ELI_LILLY_AND_COMPANY-ES201107005526

PATIENT
  Age: 59 Year
  Sex: Male

DRUGS (13)
  1. ALPRAZOLAM [Concomitant]
     Dosage: 1 DF, BID
  2. ACENOCUMAROL [Concomitant]
  3. TORSEMIDE [Concomitant]
     Dosage: 10 DF, QD
  4. PLETAL [Concomitant]
     Dosage: 1 DF, BID
  5. DIAMICRON [Concomitant]
     Dosage: 2 DF, BID
  6. BYETTA [Suspect]
     Dosage: 5 UG, UNK
     Dates: start: 20100901
  7. ATORVASTATIN [Concomitant]
     Dosage: 40 DF, QD
  8. PANTOPRAZOLE [Concomitant]
     Dosage: 40 DF, UNKNOWN
  9. FENOFIBRATE [Concomitant]
     Dosage: 160 DF, QD
  10. BYETTA [Suspect]
     Dosage: 10 UG, UNK
     Dates: start: 20101001
  11. TRAMADOL HYDROCHLORIDE [Concomitant]
     Dosage: 37.5 DF, UNK
  12. ACETAMINOPHEN [Concomitant]
     Dosage: 325 DF, PRN
  13. MULTAQ [Concomitant]
     Dosage: 400 DF, BID

REACTIONS (5)
  - GLYCOSYLATED HAEMOGLOBIN INCREASED [None]
  - BLOOD CREATININE INCREASED [None]
  - PROTEIN URINE PRESENT [None]
  - WEIGHT DECREASED [None]
  - BLOOD TRIGLYCERIDES INCREASED [None]
